FAERS Safety Report 8596404-6 (Version None)
Quarter: 2012Q3

REPORT INFORMATION
  Report Type: 
  Country: None (occurrence: None)
  Receive Date: 20120815
  Receipt Date: 20120412
  Transmission Date: 20120928
  Serious: Yes (Other)
  Sender: FDA-Public Use
  Company Number: NL-BAYER-2012-082995

PATIENT

DRUGS (1)
  1. PRAZIQUANTEL [Suspect]
     Indication: SCHISTOSOMIASIS
     Dosage: 40MG/KG
     Route: 048

REACTIONS (1)
  - SCHISTOSOMIASIS [None]
